FAERS Safety Report 23573011 (Version 3)
Quarter: 2024Q1

REPORT INFORMATION
  Report Type: Report from Study
  Country: CH (occurrence: CH)
  Receive Date: 20240227
  Receipt Date: 20240312
  Transmission Date: 20240410
  Serious: Yes (Hospitalization)
  Sender: FDA-Public Use
  Company Number: CH-ABBVIE-5649652

PATIENT
  Sex: Male

DRUGS (7)
  1. CARBIDOPA\LEVODOPA [Suspect]
     Active Substance: CARBIDOPA\LEVODOPA
     Indication: Parkinson^s disease
     Dosage: MD: 6.6 ML, CRD: 7.2 ML/H, AD: 7.5 ML, ED: 3.50 ML, CRN: 6.4 ML/H?24H THERAPY
     Route: 050
     Dates: start: 20230313, end: 20230818
  2. CARBIDOPA\LEVODOPA [Suspect]
     Active Substance: CARBIDOPA\LEVODOPA
     Dosage: MD: 6.5 ML, CRD: 7.4 ML/H, AD: 7.6 ML, ED: 4.00 ML, CRN: 6.4 ML/H?24H THERAPY
     Route: 050
     Dates: start: 20230818
  3. CARBIDOPA\LEVODOPA [Suspect]
     Active Substance: CARBIDOPA\LEVODOPA
     Dosage: 24H THERAPY
     Route: 050
     Dates: start: 20211007
  4. CARBIDOPA\LEVODOPA [Suspect]
     Active Substance: CARBIDOPA\LEVODOPA
     Dosage: MD: 6.5 ML, CRD: 7.6 ML/H, AD: 7.8 ML, ED: 4.00 ML, CRN: 6.4 ML/H?24H THERAPY
     Route: 050
     Dates: start: 20240220, end: 20240304
  5. CARBIDOPA\LEVODOPA [Suspect]
     Active Substance: CARBIDOPA\LEVODOPA
     Dosage: MD: 6.5 ML, CRD: 7.8 ML/H, AD: 8.1 ML, ED: 4.00 ML, CRN: 7.1 ML/H, LAST ADMIN DATE-MAR 2024, FREQ...
     Route: 050
     Dates: start: 20240304
  6. CARBIDOPA\LEVODOPA [Suspect]
     Active Substance: CARBIDOPA\LEVODOPA
     Dosage: MD: 6.5 ML, CRD: 7.6 ML/H, AD: 7.8 ML, ED: 4.00 ML, CRN: 6.4 ML/H?FREQUENCY TEXT: 24H THERAPY
     Route: 050
     Dates: start: 202403
  7. BENSERAZIDE HYDROCHLORIDE\LEVODOPA [Concomitant]
     Active Substance: BENSERAZIDE HYDROCHLORIDE\LEVODOPA
     Indication: Parkinson^s disease
     Dosage: TIME INTERVAL: 0.33333333 DAYS

REACTIONS (7)
  - Cardiac disorder [Unknown]
  - Bradykinesia [Not Recovered/Not Resolved]
  - Asthenia [Not Recovered/Not Resolved]
  - Freezing phenomenon [Not Recovered/Not Resolved]
  - Fatigue [Not Recovered/Not Resolved]
  - Slow speech [Not Recovered/Not Resolved]
  - Therapeutic product effect incomplete [Not Recovered/Not Resolved]

NARRATIVE: CASE EVENT DATE: 20240101
